FAERS Safety Report 9539822 (Version 4)
Quarter: 2014Q1

REPORT INFORMATION
  Report Type: Report from Study
  Country: US (occurrence: US)
  Receive Date: 20130920
  Receipt Date: 20140226
  Transmission Date: 20141002
  Serious: Yes (Hospitalization)
  Sender: FDA-Public Use
  Company Number: PHHY2013US104105

PATIENT
  Age: 59 Year
  Sex: Female
  Weight: 73.16 kg

DRUGS (18)
  1. GILENYA [Suspect]
     Indication: MULTIPLE SCLEROSIS
     Dosage: 0.5 MG, DAILY
     Route: 048
     Dates: start: 20120410
  2. EPITOL [Concomitant]
     Dosage: 200 MG, QD
     Route: 048
  3. METHOTREXATE [Concomitant]
  4. NITROFURANTOIN [Concomitant]
  5. CORTICOSTEROIDS [Concomitant]
  6. NORCO [Concomitant]
     Indication: PAIN
     Dosage: 1 DF, PRN
  7. LEXAPRO [Concomitant]
     Dosage: 10 MG, QD
  8. GABAPENTIN [Concomitant]
     Dosage: 300 MG, QD
  9. AZELASTINE [Concomitant]
  10. CLOPIDOGREL [Concomitant]
     Dosage: 75 MG, UNK
  11. ESCITALOPRAM [Concomitant]
     Dosage: 10 MG, QD
  12. ACIFOL//FOLIC ACID [Concomitant]
     Dosage: 1 MG, UNK
  13. SOLUMEDROL [Concomitant]
     Dosage: 1 G, QMO
     Route: 042
  14. VITAMIIN C [Concomitant]
     Dosage: 1 DF, QD
  15. VITAMIN D [Concomitant]
     Dosage: 1 DF, QD
  16. VITAMIN B-12 [Concomitant]
     Dosage: 1 DF, QD
  17. ZOLPIDEM [Concomitant]
     Dosage: 1 DF, QD
  18. TEGRETOL [Concomitant]

REACTIONS (21)
  - Peripheral ischaemia [Unknown]
  - Iliac artery occlusion [Unknown]
  - Femoral artery occlusion [Unknown]
  - Intermittent claudication [Unknown]
  - Pain in extremity [Unknown]
  - Skin discolouration [Unknown]
  - Ankle brachial index decreased [Unknown]
  - Ecchymosis [Unknown]
  - Vertigo CNS origin [Unknown]
  - Concomitant disease aggravated [Unknown]
  - Insomnia [Unknown]
  - Anxiety [Unknown]
  - Rheumatoid factor increased [Unknown]
  - Antinuclear antibody increased [Unknown]
  - Double stranded DNA antibody positive [Unknown]
  - Dizziness [Unknown]
  - Multiple sclerosis relapse [Unknown]
  - Asthenia [Unknown]
  - Vision blurred [Unknown]
  - Visual impairment [Unknown]
  - Herpes zoster [Unknown]
